FAERS Safety Report 9367384 (Version 2)
Quarter: 2013Q3

REPORT INFORMATION
  Report Type: Spontaneous
  Country: ES (occurrence: DE)
  Receive Date: 20130625
  Receipt Date: 20130710
  Transmission Date: 20140515
  Serious: Yes (Other)
  Sender: FDA-Public Use
  Company Number: DE-FRI-1000046138

PATIENT
  Age: 69 Year
  Sex: Male

DRUGS (3)
  1. ACLIDINIUM [Suspect]
     Indication: CHRONIC OBSTRUCTIVE PULMONARY DISEASE
     Dosage: 644 MCG
     Dates: start: 20130507
  2. LYRICA [Concomitant]
  3. BISOPROLOL [Concomitant]

REACTIONS (2)
  - Angina pectoris [Recovered/Resolved]
  - Musculoskeletal disorder [Recovered/Resolved]
